FAERS Safety Report 12417780 (Version 3)
Quarter: 2018Q2

REPORT INFORMATION
  Report Type: Spontaneous
  Country: JP (occurrence: JP)
  Receive Date: 20160530
  Receipt Date: 20180507
  Transmission Date: 20180711
  Serious: Yes (Death, Hospitalization, Other)
  Sender: FDA-Public Use
  Company Number: JP-UCBSA-2016018931

PATIENT
  Age: 65 Year
  Sex: Female

DRUGS (10)
  1. CELECOX [Concomitant]
     Active Substance: CELECOXIB
     Indication: RHEUMATOID ARTHRITIS
     Dosage: 150 MG, 2X/DAY (BID)
     Route: 048
  2. CIMZIA [Suspect]
     Active Substance: CERTOLIZUMAB PEGOL
     Indication: SYSTEMIC SCLERODERMA
     Dosage: 200 MG, EV 2 WEEKS(QOW)
     Route: 058
     Dates: start: 20140327, end: 20160105
  3. PROCYLIN [Concomitant]
     Active Substance: BERAPROST SODIUM
     Indication: RAYNAUD^S PHENOMENON
     Dosage: 20 MG, 2X/DAY (BID)
     Route: 048
     Dates: start: 20070409
  4. MENATETRENONE [Concomitant]
     Active Substance: MENATETRENONE
     Indication: OSTEOPOROSIS
     Dosage: 15 MG, 2X/DAY (BID)
     Route: 048
     Dates: start: 20080304
  5. INDOMETACIN [Concomitant]
     Active Substance: INDOMETHACIN
     Indication: RHEUMATOID ARTHRITIS
     Dosage: 25 MG, EV 4 WEEKS
     Route: 062
     Dates: start: 20140416
  6. TAKEPRON [Concomitant]
     Active Substance: LANSOPRAZOLE
     Indication: GASTROOESOPHAGEAL REFLUX DISEASE
     Dosage: 15 MG, ONCE DAILY (QD)
     Route: 048
     Dates: start: 20070409
  7. CIMZIA [Suspect]
     Active Substance: CERTOLIZUMAB PEGOL
     Indication: RHEUMATOID ARTHRITIS
     Dosage: 400 MG, EV 2 WEEKS(QOW)
     Route: 058
     Dates: start: 20140213, end: 20140313
  8. BONALON [Concomitant]
     Active Substance: ALENDRONATE SODIUM
     Indication: OSTEOPOROSIS
     Dosage: 900 MG, EV 4 WEEKS
     Route: 041
     Dates: start: 20121229
  9. PREDNISOLONE. [Concomitant]
     Active Substance: PREDNISOLONE
     Indication: RHEUMATOID ARTHRITIS
     Dosage: 2 MG, 2X/DAY (BID)
     Route: 048
     Dates: start: 20100810
  10. EDIROL [Concomitant]
     Active Substance: ELDECALCITOL
     Indication: OSTEOPOROSIS
     Dosage: 0.75 MG, ONCE DAILY (QD)
     Route: 048
     Dates: start: 20130611

REACTIONS (3)
  - Hodgkin^s disease [Unknown]
  - Interstitial lung disease [Fatal]
  - Lymphoproliferative disorder [Fatal]

NARRATIVE: CASE EVENT DATE: 20151210
